FAERS Safety Report 8597037-8 (Version None)
Quarter: 2012Q3

REPORT INFORMATION
  Report Type: 
  Country: None (occurrence: None)
  Receive Date: 20120816
  Receipt Date: 20120808
  Transmission Date: 20120928
  Serious: Yes (Death)
  Sender: FDA-Public Use
  Company Number: JP-AMGEN-JPNSP2012048727

PATIENT
  Age: 68 Year
  Sex: Female

DRUGS (6)
  1. RHEUMATREX [Suspect]
     Dosage: UNK
     Route: 048
     Dates: start: 20020101, end: 20101201
  2. REMICADE [Concomitant]
     Indication: RHEUMATOID ARTHRITIS
     Dosage: UNK
     Route: 041
     Dates: start: 20050801, end: 20070201
  3. PREDNISOLONE [Concomitant]
     Dosage: UNK
     Route: 048
     Dates: start: 20110801, end: 20120301
  4. ENBREL [Suspect]
     Indication: RHEUMATOID ARTHRITIS
     Dosage: UNK
     Route: 058
     Dates: start: 20070201, end: 20110801
  5. TACROLIMUS [Concomitant]
     Dosage: UNK
     Route: 048
     Dates: start: 20101201, end: 20110801
  6. ABATACEPT [Concomitant]
     Dosage: UNK
     Route: 041

REACTIONS (1)
  - LYMPHOMA [None]
